FAERS Safety Report 8261990-2 (Version None)
Quarter: 2012Q2

REPORT INFORMATION
  Report Type: 
  Country: None (occurrence: None)
  Receive Date: 20120405
  Receipt Date: 20120328
  Transmission Date: 20120825
  Serious: Yes (Death, Other)
  Sender: FDA-Public Use
  Company Number: JP-PFIZER INC-2012040702

PATIENT
  Age: 27 Year
  Sex: Male

DRUGS (1)
  1. AMIODARONE HYDROCHLORIDE [Suspect]
     Indication: VENTRICULAR ARRHYTHMIA
     Dosage: UNK
     Route: 065

REACTIONS (2)
  - SUDDEN DEATH [None]
  - HYPERTHYROIDISM [None]
